FAERS Safety Report 16323341 (Version 6)
Quarter: 2019Q4

REPORT INFORMATION
  Report Type: Spontaneous
  Country: FR (occurrence: FR)
  Receive Date: 20190517
  Receipt Date: 20191217
  Transmission Date: 20200122
  Serious: Yes (Life-Threatening, Hospitalization)
  Sender: FDA-Public Use
  Company Number: FR-ROCHE-2320158

PATIENT
  Age: 39 Year
  Sex: Female

DRUGS (6)
  1. SODIUM VALPROATE [Interacting]
     Active Substance: VALPROATE SODIUM
     Indication: TOXICITY TO VARIOUS AGENTS
     Route: 048
  2. QUETIAPINE. [Interacting]
     Active Substance: QUETIAPINE
     Indication: MAJOR DEPRESSION
     Route: 048
  3. PROPANOLOL [PROPRANOLOL] [Interacting]
     Active Substance: PROPRANOLOL HYDROCHLORIDE
     Indication: TOXICITY TO VARIOUS AGENTS
     Route: 048
  4. QUETIAPINE. [Interacting]
     Active Substance: QUETIAPINE
     Indication: TOXICITY TO VARIOUS AGENTS
  5. DIAZEPAM. [Suspect]
     Active Substance: DIAZEPAM
     Indication: TOXICITY TO VARIOUS AGENTS
     Route: 048
  6. ALPRAZOLAM. [Interacting]
     Active Substance: ALPRAZOLAM
     Indication: TOXICITY TO VARIOUS AGENTS
     Route: 048

REACTIONS (15)
  - Coma [Recovering/Resolving]
  - Condition aggravated [Recovering/Resolving]
  - Blood pressure systolic decreased [Unknown]
  - Sinus rhythm [Unknown]
  - Drug interaction [Unknown]
  - Pneumonia aspiration [Unknown]
  - Off label use [Unknown]
  - Electrocardiogram QRS complex shortened [Unknown]
  - Lung disorder [Unknown]
  - Intentional overdose [Unknown]
  - Hypotension [Unknown]
  - Blood creatine phosphokinase increased [Unknown]
  - Heart rate decreased [Unknown]
  - Toxicity to various agents [Unknown]
  - Intentional product use issue [Unknown]
